FAERS Safety Report 12994941 (Version 2)
Quarter: 2017Q1

REPORT INFORMATION
  Report Type: Report from Study
  Country: US (occurrence: US)
  Receive Date: 20161202
  Receipt Date: 20170112
  Transmission Date: 20170428
  Serious: Yes (Hospitalization, Other)
  Sender: FDA-Public Use
  Company Number: US-BAYER-2016-183702

PATIENT
  Age: 58 Year
  Sex: Female
  Weight: 88.44 kg

DRUGS (15)
  1. COUMADIN [Concomitant]
     Active Substance: WARFARIN SODIUM
     Dosage: 5 MG
     Route: 048
  2. HEPARIN [Concomitant]
     Active Substance: HEPARIN SODIUM
     Dosage: 100 UNIT/ML
  3. TENORMIN [Concomitant]
     Active Substance: ATENOLOL
     Dosage: 50 MG, BID
  4. OXYCODONE HYDROCHLORIDE. [Concomitant]
     Active Substance: OXYCODONE HYDROCHLORIDE
     Dosage: 20 MG EVENRY 4 HRS
     Route: 048
  5. HYDRALAZINE [Concomitant]
     Active Substance: HYDRALAZINE HYDROCHLORIDE
     Indication: HYPERTENSION
     Dosage: UNK UNK, PRN
  6. DILAUDID [Concomitant]
     Active Substance: HYDROMORPHONE HYDROCHLORIDE
     Indication: PAIN
     Dosage: 1 MG, PRN
  7. AMLODIPINE [Concomitant]
     Active Substance: AMLODIPINE BESYLATE
  8. STIVARGA [Suspect]
     Active Substance: REGORAFENIB
     Indication: COLORECTAL CANCER
     Dosage: 160 MG, QD
     Route: 048
     Dates: start: 2016, end: 20161001
  9. FLEXERIL [Concomitant]
     Active Substance: CYCLOBENZAPRINE HYDROCHLORIDE
     Dosage: 10 MG, TID AS NEEDED
  10. DEXAMETHAZON [Concomitant]
     Active Substance: DEXAMETHASONE
     Dosage: 1 TAB AS DIRECTED
  11. SODIUM CHLORIDE. [Concomitant]
     Active Substance: SODIUM CHLORIDE
     Dosage: 10 ML TO FLUSH PORT AS DIRECTED
  12. STIVARGA [Suspect]
     Active Substance: REGORAFENIB
     Indication: ADENOCARCINOMA OF COLON
     Dosage: 160 MG, QD
     Route: 048
     Dates: start: 2016, end: 2016
  13. BENADRYL [Concomitant]
     Active Substance: DIPHENHYDRAMINE HYDROCHLORIDE
     Dosage: DAILY DOSE 25 MG
     Route: 048
  14. ROCEPHIN [Concomitant]
     Active Substance: CEFTRIAXONE SODIUM
     Indication: URINARY TRACT INFECTION
  15. NORVASC [Concomitant]
     Active Substance: AMLODIPINE BESYLATE
     Dosage: 10 MG
     Route: 048

REACTIONS (24)
  - Vomiting [Recovering/Resolving]
  - Brachiocephalic vein thrombosis [None]
  - Night sweats [None]
  - Diplopia [None]
  - Abdominal tenderness [None]
  - Fatigue [None]
  - Haematochezia [None]
  - Somnolence [None]
  - Oropharyngeal pain [None]
  - Abdominal pain [Recovering/Resolving]
  - Melaena [None]
  - Retinal exudates [None]
  - Blood pressure increased [Recovered/Resolved]
  - Tachycardia [None]
  - Nausea [Recovering/Resolving]
  - Hypokalaemia [Recovered/Resolved]
  - Sepsis [None]
  - Liver function test increased [Recovering/Resolving]
  - Throat irritation [None]
  - Deep vein thrombosis [None]
  - Tumour pain [Recovering/Resolving]
  - Chills [None]
  - Pneumonia [None]
  - Urinary tract infection [None]

NARRATIVE: CASE EVENT DATE: 2016
